FAERS Safety Report 6743995-3 (Version None)
Quarter: 2010Q2

REPORT INFORMATION
  Report Type: 
  Country: None (occurrence: None)
  Receive Date: 20100527
  Receipt Date: 20100504
  Transmission Date: 20101027
  Serious: Yes (Death)
  Sender: FDA-Public Use
  Company Number: SE-JNJFOC-20100509834

PATIENT
  Age: 59 Year
  Sex: Male

DRUGS (2)
  1. HALOPERIDOL [Suspect]
     Indication: BIPOLAR DISORDER
     Route: 065
  2. CLONAZEPAM [Suspect]
     Indication: BIPOLAR DISORDER
     Route: 065

REACTIONS (5)
  - DRUG INTERACTION [None]
  - MYOCARDIAL INFARCTION [None]
  - PULMONARY EMBOLISM [None]
  - SUDDEN DEATH [None]
  - VENOUS THROMBOSIS [None]
